FAERS Safety Report 14228795 (Version 1)
Quarter: 2017Q4

REPORT INFORMATION
  Report Type: Spontaneous
  Country: FR (occurrence: FR)
  Receive Date: 20171128
  Receipt Date: 20171128
  Transmission Date: 20180321
  Serious: Yes (Death, Hospitalization, Other)
  Sender: FDA-Public Use
  Company Number: FR-ORION CORPORATION ORION PHARMA-TREX2017-3812

PATIENT
  Age: 71 Year
  Sex: Female

DRUGS (3)
  1. PREDNISONE. [Suspect]
     Active Substance: PREDNISONE
     Indication: RHEUMATOID ARTHRITIS
     Route: 065
  2. METHOTREXATE. [Suspect]
     Active Substance: METHOTREXATE
     Indication: RHEUMATOID ARTHRITIS
     Route: 065
  3. METHOTREXATE. [Suspect]
     Active Substance: METHOTREXATE
     Route: 065

REACTIONS (9)
  - Hypotension [Fatal]
  - Chronic kidney disease [Fatal]
  - Cardiogenic shock [Fatal]
  - Cardiac failure [Fatal]
  - Immunodeficiency [Fatal]
  - Dehydration [Fatal]
  - Anaemia macrocytic [Fatal]
  - C-reactive protein increased [Fatal]
  - Isosporiasis [Fatal]
